FAERS Safety Report 9119924 (Version 3)
Quarter: 2013Q2

REPORT INFORMATION
  Report Type: Spontaneous
  Country: JP (occurrence: JP)
  Receive Date: 20130226
  Receipt Date: 20130426
  Transmission Date: 20140414
  Serious: Yes (Hospitalization)
  Sender: FDA-Public Use
  Company Number: JP-JNJFOC-20130214210

PATIENT
  Age: 68 Year
  Sex: Male
  Weight: 69 kg

DRUGS (20)
  1. REMICADE [Suspect]
     Indication: COLITIS ULCERATIVE
     Route: 042
     Dates: start: 20111126
  2. REMICADE [Suspect]
     Indication: COLITIS ULCERATIVE
     Dosage: 15TH (FINAL) DOSE
     Route: 042
     Dates: start: 20110926
  3. REMICADE [Suspect]
     Indication: COLITIS ULCERATIVE
     Dosage: TOTAL INFUSIONS : 15
     Route: 042
     Dates: start: 20100701
  4. REMICADE [Suspect]
     Indication: COLITIS ULCERATIVE
     Route: 042
     Dates: start: 20120926
  5. PENTASA [Concomitant]
     Indication: COLITIS ULCERATIVE
     Dosage: DOSE FOR ONE TREATMENT: 750 MG
     Route: 048
  6. LAC-B [Concomitant]
     Indication: COLITIS ULCERATIVE
     Dosage: DOSE FOR 1 TREATMENT: 2 G
     Route: 048
  7. BONALON [Concomitant]
     Indication: OSTEOPOROSIS
     Route: 048
  8. MUCOSTA [Concomitant]
     Indication: GASTRITIS
     Dosage: DOSE FOR ONE TREATMENT: 100 MG
     Route: 048
  9. OMEPRAZOLE [Concomitant]
     Dosage: DOSE FOR ONE TREATMENT: 10 MG
     Route: 048
  10. WYPAX [Concomitant]
     Indication: DEPRESSION
     Route: 048
  11. MAGLAX [Concomitant]
     Indication: CONSTIPATION
     Route: 048
  12. PREDNISOLONE [Concomitant]
     Route: 065
  13. INSULIN [Concomitant]
     Route: 065
  14. GASCON [Concomitant]
     Indication: FLATULENCE
     Dosage: DOSE FOR ONE TREATMENT: 80 MG
     Route: 048
  15. NEXIUM [Concomitant]
     Route: 048
  16. TETRAMIDE [Concomitant]
     Indication: DEPRESSION
     Route: 048
  17. FLUNITRAZEPAM [Concomitant]
     Indication: DEPRESSION
     Route: 048
  18. LENDORMIN [Concomitant]
     Indication: INSOMNIA
     Route: 048
  19. BENZALIN [Concomitant]
     Indication: INSOMNIA
     Route: 048
  20. LECICARBON [Concomitant]
     Indication: CONSTIPATION
     Route: 054

REACTIONS (3)
  - Osteosclerosis [Recovering/Resolving]
  - Osteitis [Recovering/Resolving]
  - Rash pustular [Recovered/Resolved]
